FAERS Safety Report 5422984-5 (Version None)
Quarter: 2007Q3

REPORT INFORMATION
  Report Type: 
  Country: None (occurrence: None)
  Receive Date: 20070822
  Receipt Date: 20070815
  Transmission Date: 20080115
  Serious: Yes (Hospitalization, Disabling)
  Sender: FDA-Public Use
  Company Number: US-MERCK-0708USA01020

PATIENT
  Age: 50 Year
  Sex: Female
  Weight: 104 kg

DRUGS (7)
  1. JANUVIA [Suspect]
     Indication: TYPE 2 DIABETES MELLITUS
     Route: 048
     Dates: start: 20070701, end: 20070701
  2. GLYBURIDE [Concomitant]
     Indication: TYPE 2 DIABETES MELLITUS
     Route: 048
     Dates: end: 20070803
  3. TEGRETOL [Concomitant]
     Indication: BIPOLAR DISORDER
     Route: 048
  4. LISINOPRIL [Concomitant]
     Indication: HYPERTENSION
     Route: 048
     Dates: end: 20070803
  5. LISINOPRIL [Concomitant]
     Indication: PROPHYLAXIS
     Route: 048
     Dates: end: 20070803
  6. GLUCOPHAGE [Concomitant]
     Indication: TYPE 2 DIABETES MELLITUS
     Route: 048
     Dates: end: 20070803
  7. RISPERDAL [Concomitant]
     Indication: BIPOLAR DISORDER
     Route: 048

REACTIONS (2)
  - FACE OEDEMA [None]
  - RASH PRURITIC [None]
